FAERS Safety Report 4739229-1 (Version None)
Quarter: 2005Q3

REPORT INFORMATION
  Report Type: 
  Country: None (occurrence: None)
  Receive Date: 20050810
  Receipt Date: 20050601
  Transmission Date: 20060218
  Serious: No
  Sender: FDA-Public Use
  Company Number: US-GLAXOSMITHKLINE-A0560743A

PATIENT
  Sex: Female

DRUGS (6)
  1. PAXIL CR [Suspect]
     Indication: DEPRESSION
     Dosage: 25MG PER DAY
     Route: 048
     Dates: end: 20050511
  2. ZOCOR [Concomitant]
  3. TOPAMAX [Concomitant]
  4. NEXIUM [Concomitant]
  5. ZETIA [Concomitant]
  6. SYNTHROID [Concomitant]

REACTIONS (11)
  - AGITATION [None]
  - ASTHENIA [None]
  - CRYING [None]
  - EYE IRRITATION [None]
  - FATIGUE [None]
  - FEELING HOT [None]
  - INFLUENZA LIKE ILLNESS [None]
  - MALAISE [None]
  - MENTAL DISORDER [None]
  - MOOD SWINGS [None]
  - PAIN [None]
